FAERS Safety Report 4640643-3 (Version None)
Quarter: 2005Q2

REPORT INFORMATION
  Report Type: 
  Country: None (occurrence: None)
  Receive Date: 20050419
  Receipt Date: 20050406
  Transmission Date: 20051028
  Serious: Yes (Hospitalization, Other)
  Sender: FDA-Public Use
  Company Number: 2005056769

PATIENT
  Age: 61 Year
  Sex: Female

DRUGS (4)
  1. IRINOTECAN HCL [Suspect]
     Indication: COLORECTAL CANCER
     Dosage: 580 MG, CYCLIC, EVERY 3 WEEKS), INTRAVENOUS
     Route: 042
     Dates: start: 20031111, end: 20040112
  2. CAPECITABINE (CAPECITABINE) [Suspect]
     Indication: COLORECTAL CANCER
     Dosage: 4000 MG (2000 MG, 2 OF 3 WEEKS), ORAL
     Route: 048
     Dates: start: 20031111, end: 20031125
  3. MORPHINE SULFATE [Concomitant]
  4. METFORMIN HCL [Concomitant]

REACTIONS (8)
  - ABDOMINAL PAIN [None]
  - ABSCESS [None]
  - DISEASE RECURRENCE [None]
  - DRUG TOXICITY [None]
  - FEBRILE NEUTROPENIA [None]
  - HYDRONEPHROSIS [None]
  - HYPERTENSION [None]
  - UROSEPSIS [None]
